FAERS Safety Report 21643306 (Version 2)
Quarter: 2023Q1

REPORT INFORMATION
  Report Type: Report from Study
  Country: US (occurrence: US)
  Receive Date: 20221125
  Receipt Date: 20230215
  Transmission Date: 20230418
  Serious: Yes (Other)
  Sender: FDA-Public Use
  Company Number: US-ABBVIE-4214086

PATIENT
  Age: 61 Year
  Sex: Female
  Weight: 58 kg

DRUGS (11)
  1. RINVOQ [Suspect]
     Active Substance: UPADACITINIB
     Indication: Colitis ulcerative
     Route: 048
     Dates: start: 20221202
  2. RINVOQ [Suspect]
     Active Substance: UPADACITINIB
     Indication: Colitis ulcerative
     Route: 048
     Dates: end: 20221121
  3. METOPROLOL [Concomitant]
     Active Substance: METOPROLOL
     Indication: Product used for unknown indication
  4. XARELTO [Concomitant]
     Active Substance: RIVAROXABAN
     Indication: Product used for unknown indication
  5. 50 ?g Levothyroxine sodium [Concomitant]
     Indication: Product used for unknown indication
     Dates: start: 20220830
  6. LOSARTAN [Concomitant]
     Active Substance: LOSARTAN
     Indication: Product used for unknown indication
  7. 150 ?g Levothyroxine sodium [Concomitant]
     Indication: Product used for unknown indication
     Dosage: 150
     Dates: start: 20221112
  8. AMLODIPINE [Concomitant]
     Active Substance: AMLODIPINE BESYLATE
     Indication: Product used for unknown indication
  9. SODIUM IODIDE I-131 [Concomitant]
     Active Substance: SODIUM IODIDE I-131
     Indication: Product used for unknown indication
     Dates: start: 20221109
  10. PREDNISONE [Concomitant]
     Active Substance: PREDNISONE
     Indication: Product used for unknown indication
     Dates: start: 20221119
  11. 100 ?g Levothyroxine sodium [Concomitant]
     Indication: Product used for unknown indication
     Dates: start: 20221029

REACTIONS (5)
  - Thyroidectomy [Unknown]
  - Tachycardia [Unknown]
  - Atrial fibrillation [Not Recovered/Not Resolved]
  - Swelling face [Unknown]
  - Mouth swelling [Unknown]

NARRATIVE: CASE EVENT DATE: 20220830
